FAERS Safety Report 19794596 (Version 2)
Quarter: 2021Q3

REPORT INFORMATION
  Report Type: Spontaneous
  Country: CN (occurrence: CN)
  Receive Date: 20210906
  Receipt Date: 20210924
  Transmission Date: 20211014
  Serious: Yes (Life-Threatening, Hospitalization, Other)
  Sender: FDA-Public Use
  Company Number: CN-LUPIN PHARMACEUTICALS INC.-2021-16533

PATIENT
  Age: 60 Year
  Sex: Male

DRUGS (26)
  1. NOREPINEPHRINE. [Concomitant]
     Active Substance: NOREPINEPHRINE
     Indication: PRODUCT USED FOR UNKNOWN INDICATION
     Dosage: 20 MILLIGRAM, QD
     Route: 042
  2. MEROPENEM. [Concomitant]
     Active Substance: MEROPENEM
     Dosage: PUMPING, 8.3 MG/MIN
     Route: 042
  3. METHYLPREDNISOLONE. [Suspect]
     Active Substance: METHYLPREDNISOLONE
     Indication: THROMBOTIC THROMBOCYTOPENIC PURPURA
     Dosage: 80 MILLIGRAM, QD (INJECTION)
     Route: 042
     Dates: start: 10170325
  4. VANCOMYCIN [Suspect]
     Active Substance: VANCOMYCIN
     Indication: ANTIBIOTIC THERAPY
     Dosage: 500 MILLIGRAM, BID
     Route: 042
  5. VITAMIN C [Concomitant]
     Active Substance: ASCORBIC ACID
     Indication: PRODUCT USED FOR UNKNOWN INDICATION
     Dosage: INTRAVENOUS PUMPING, QD, 0.6 G/MIN
     Route: 042
  6. GLYCEROL [Concomitant]
     Active Substance: GLYCERIN
     Indication: ENTEROCLYSIS
     Dosage: ENEMA
     Route: 065
  7. ORNITHINE ASPARTATE [Concomitant]
     Active Substance: ORNITHINE ASPARTATE
     Indication: PRODUCT USED FOR UNKNOWN INDICATION
     Dosage: 15 GRAM
     Route: 042
  8. AMIODARONE HYDROCHLORIDE. [Concomitant]
     Active Substance: AMIODARONE HYDROCHLORIDE
     Indication: PRODUCT USED FOR UNKNOWN INDICATION
     Dosage: 150 MILLIGRAM, QD
     Route: 042
  9. METHYLPREDNISOLONE. [Suspect]
     Active Substance: METHYLPREDNISOLONE
     Dosage: 80 MILLIGRAM, QD
     Route: 042
  10. OMEPRAZOLE. [Concomitant]
     Active Substance: OMEPRAZOLE
     Indication: THROMBOTIC THROMBOCYTOPENIC PURPURA
     Dosage: 40 MILLIGRAM, QD
     Route: 042
  11. CEFUROXIME SODIUM. [Concomitant]
     Active Substance: CEFUROXIME SODIUM
     Indication: ANTIBIOTIC THERAPY
     Dosage: 2250 MILLIGRAM, BID
     Route: 042
  12. LEVETIRACETAM. [Concomitant]
     Active Substance: LEVETIRACETAM
     Indication: SEIZURE
     Dosage: INFUSED INTO THE GASTRIC TUBE
     Route: 065
  13. FLUCONAZOLE. [Concomitant]
     Active Substance: FLUCONAZOLE
     Indication: FUNGAL INFECTION
     Dosage: FLUCONAZOLE AND SODIUM CHLORIDE INJECTION 0.2 G
     Route: 042
  14. NALOXONE [Concomitant]
     Active Substance: NALOXONE
     Indication: PRODUCT USED FOR UNKNOWN INDICATION
     Dosage: 2 MILLIGRAM, BID
     Route: 042
  15. CASPOFUNGIN ACETATE. [Concomitant]
     Active Substance: CASPOFUNGIN ACETATE
     Indication: FUNGAL INFECTION
     Dosage: 50 MILLIGRAM, QD
     Route: 042
  16. HUMAN IMMUNOGLOBULIN [Concomitant]
     Indication: THROMBOTIC THROMBOCYTOPENIC PURPURA
     Dosage: 20 GRAM, QD
     Route: 042
  17. METHYLPREDNISOLONE. [Suspect]
     Active Substance: METHYLPREDNISOLONE
     Dosage: ON DAY 6 (INJECTION)
     Route: 042
  18. GLUTATHIONE [Concomitant]
     Active Substance: GLUTATHIONE
     Indication: THROMBOTIC THROMBOCYTOPENIC PURPURA
     Dosage: 1800 MILLIGRAM
     Route: 042
  19. CEFTAZIDIME. [Concomitant]
     Active Substance: CEFTAZIDIME
     Indication: ANTIBIOTIC THERAPY
     Dosage: 2 GRAM, BID
     Route: 042
  20. TIGECYCLINE. [Concomitant]
     Active Substance: TIGECYCLINE
     Indication: ANTIBIOTIC THERAPY
     Dosage: 50 MILLIGRAM, BID
     Route: 042
  21. SODIUM CHLORIDE. [Concomitant]
     Active Substance: SODIUM CHLORIDE
     Indication: FUNGAL INFECTION
     Dosage: FLUCONAZOLE AND SODIUM CHLORIDE INJECTION 0.2 G
     Route: 042
  22. VANCOMYCIN [Suspect]
     Active Substance: VANCOMYCIN
     Dosage: 1 GRAM, BID
     Route: 042
  23. DOPAMINE [Concomitant]
     Active Substance: DOPAMINE HYDROCHLORIDE
     Indication: PRODUCT USED FOR UNKNOWN INDICATION
     Dosage: PUMPING, 0.83 MG/MIN
     Route: 042
  24. MEROPENEM. [Concomitant]
     Active Substance: MEROPENEM
     Indication: ANTIBIOTIC THERAPY
     Dosage: 500 MILLIGRAM, BID
     Route: 042
  25. AMIKACIN. [Concomitant]
     Active Substance: AMIKACIN
     Indication: ANTIBIOTIC THERAPY
     Dosage: 800 MILLIGRAM, QD
     Route: 042
  26. CEFOPERAZONE SODIUM AND SULBACTAM SODIUM [Concomitant]
     Active Substance: CEFOPERAZONE SODIUM\SULBACTAM SODIUM
     Indication: ANTIBIOTIC THERAPY
     Dosage: 3 GRAM
     Route: 042

REACTIONS (4)
  - Pneumonia [Recovering/Resolving]
  - Somnolence [Recovering/Resolving]
  - Overdose [Unknown]
  - Klebsiella infection [Recovering/Resolving]
